FAERS Safety Report 23531753 (Version 1)
Quarter: 2024Q1

REPORT INFORMATION
  Report Type: Spontaneous
  Country: US (occurrence: None)
  Receive Date: 20240215
  Receipt Date: 20240215
  Transmission Date: 20240409
  Serious: Yes (Congenital Anomaly)
  Sender: FDA-Public Use
  Company Number: None

PATIENT
  Age: 2 Day
  Sex: Male
  Weight: 3995 kg

DRUGS (1)
  1. SERTRALINE [Suspect]
     Active Substance: SERTRALINE HYDROCHLORIDE

REACTIONS (3)
  - Atrial septal defect [None]
  - Patent ductus arteriosus [None]
  - Left-to-right cardiac shunt [None]

NARRATIVE: CASE EVENT DATE: 20191109
